FAERS Safety Report 5266687-9 (Version None)
Quarter: 2007Q1

REPORT INFORMATION
  Report Type: 
  Country: None (occurrence: None)
  Receive Date: 20070312
  Receipt Date: 20070227
  Transmission Date: 20070707
  Serious: Yes (Death, Hospitalization)
  Sender: FDA-Public Use
  Company Number: GXKR2007GB02078

PATIENT
  Age: 70 Year
  Sex: Female

DRUGS (5)
  1. TRIMETHOPRIM [Suspect]
     Indication: WOUND INFECTION STAPHYLOCOCCAL
     Dosage: 200 MG ORAL
     Route: 048
     Dates: start: 20060721, end: 20060810
  2. RIFAMPICIN [Suspect]
     Indication: WOUND INFECTION STAPHYLOCOCCAL
     Dosage: 300 MG ORAL
     Route: 048
     Dates: start: 20060721, end: 20060810
  3. CEFUROXIME [Concomitant]
  4. FLUCLOXACILLIN (FLUCOXACILLIN) [Concomitant]
  5. VANCOMYCIN [Concomitant]

REACTIONS (1)
  - PNEUMONIA [None]
